FAERS Safety Report 9521027 (Version 2)
Quarter: 2014Q1

REPORT INFORMATION
  Report Type: Spontaneous
  Country: IT (occurrence: IT)
  Receive Date: 20130913
  Receipt Date: 20140203
  Transmission Date: 20141002
  Serious: Yes (Other)
  Sender: FDA-Public Use
  Company Number: IT-ACCORD-019347

PATIENT
  Age: 75 Year
  Sex: Female
  Weight: 45 kg

DRUGS (1)
  1. PACLITAXEL/PACLITAXEL LIPOSOME [Suspect]
     Indication: OVARIAN CANCER
     Route: 042
     Dates: start: 20130528, end: 20130528

REACTIONS (3)
  - Rash [Recovered/Resolved]
  - Hyperhidrosis [Recovered/Resolved]
  - Laryngospasm [Recovered/Resolved]
